FAERS Safety Report 14473488 (Version 1)
Quarter: 2018Q1

REPORT INFORMATION
  Report Type: Spontaneous
  Country: US (occurrence: US)
  Receive Date: 20180201
  Receipt Date: 20180201
  Transmission Date: 20180509
  Serious: No
  Sender: FDA-Public Use
  Company Number: US-LUPIN PHARMACEUTICALS INC.-2017-03458

PATIENT
  Sex: Male

DRUGS (2)
  1. PHENELZINE [Suspect]
     Active Substance: PHENELZINE
     Indication: PRODUCT USED FOR UNKNOWN INDICATION
     Dosage: 60 MG, QD
     Route: 065
  2. PHENELZINE [Suspect]
     Active Substance: PHENELZINE
     Dosage: 30 MG, QD
     Route: 065

REACTIONS (2)
  - Headache [Unknown]
  - Incorrect dose administered [Unknown]
